FAERS Safety Report 24343142 (Version 1)
Quarter: 2024Q3

REPORT INFORMATION
  Report Type: Spontaneous
  Country: US (occurrence: US)
  Receive Date: 20240920
  Receipt Date: 20240920
  Transmission Date: 20241016
  Serious: No
  Sender: BRAEBURN PHARMACEUTICALS
  Company Number: US-BRAEBURN-US-BRA-24-000610

PATIENT
  Age: 32 Year
  Sex: Male

DRUGS (1)
  1. BRIXADI [Suspect]
     Active Substance: BUPRENORPHINE
     Indication: Drug dependence
     Dosage: UNK, WEEKLY
     Route: 058
     Dates: start: 20240412

REACTIONS (2)
  - Paranoia [Not Recovered/Not Resolved]
  - Drug screen positive [Recovering/Resolving]

NARRATIVE: CASE EVENT DATE: 20240405
